FAERS Safety Report 8460203 (Version 2)
Quarter: 2013Q2

REPORT INFORMATION
  Report Type: Spontaneous
  Country: US (occurrence: None)
  Receive Date: 20120227
  Receipt Date: 20120525
  Transmission Date: 20140414
  Serious: Yes (Other)
  Sender: FDA-Public Use
  Company Number: 341904

PATIENT
  Age: 52 Year
  Sex: Male

DRUGS (5)
  1. VICTOZA [Suspect]
     Indication: TYPE 2 DIABETES MELLITUS
     Route: 058
     Dates: start: 20110901, end: 20111219
  2. ZESTRIL [Concomitant]
  3. ZOCOR [Concomitant]
  4. GLUCOTROL [Concomitant]
  5. METFORMIN HYDROCHLORIDE [Concomitant]

REACTIONS (1)
  - PANCREATITIS ACUTE [None]
